FAERS Safety Report 5615162-8 (Version None)
Quarter: 2008Q1

REPORT INFORMATION
  Report Type: 
  Country: None (occurrence: None)
  Receive Date: 20080206
  Receipt Date: 20070924
  Transmission Date: 20080703
  Serious: No
  Sender: FDA-Public Use
  Company Number: A0683826A

PATIENT
  Age: 69 Year
  Sex: Male

DRUGS (10)
  1. ARIXTRA [Suspect]
     Indication: DEEP VEIN THROMBOSIS
     Dosage: 7.5MG PER DAY
     Route: 058
     Dates: start: 20070914
  2. KEPPRA [Concomitant]
  3. TOPROL-XL [Concomitant]
  4. AVAPRO [Concomitant]
  5. UNKNOWN MEDICATION [Concomitant]
  6. ERYTHROMYCIN [Concomitant]
  7. COQ-10 [Concomitant]
  8. OMEGA 3 [Concomitant]
  9. ESTER-C [Concomitant]
  10. GRAPE SEED EXTRACT [Concomitant]

REACTIONS (2)
  - HEADACHE [None]
  - VISION BLURRED [None]
